FAERS Safety Report 23455783 (Version 2)
Quarter: 2024Q1

REPORT INFORMATION
  Report Type: Spontaneous
  Country: US (occurrence: US)
  Receive Date: 20240130
  Receipt Date: 20240130
  Transmission Date: 20240409
  Serious: Yes (Hospitalization)
  Sender: FDA-Public Use
  Company Number: US-STRIDES ARCOLAB LIMITED-2023SP011220

PATIENT
  Age: 13 Year
  Sex: Male

DRUGS (2)
  1. METHOTREXATE [Suspect]
     Active Substance: METHOTREXATE
     Indication: Philadelphia chromosome positive
     Dosage: UNK, (INFUSION), HIGH DOSE, MAINTENANCE CHEMOTHERAPY
     Route: 065
  2. METHOTREXATE [Suspect]
     Active Substance: METHOTREXATE
     Indication: B-cell type acute leukaemia

REACTIONS (6)
  - Acute kidney injury [Recovered/Resolved]
  - Toxicity to various agents [Recovered/Resolved]
  - Cholera [Recovered/Resolved]
  - Oedema [Unknown]
  - Diarrhoea [Unknown]
  - Mucosal ulceration [Unknown]
